FAERS Safety Report 15000412 (Version 1)
Quarter: 2018Q2

REPORT INFORMATION
  Report Type: Spontaneous
  Country: DE (occurrence: DE)
  Receive Date: 20180612
  Receipt Date: 20180612
  Transmission Date: 20180711
  Serious: Yes (Hospitalization)
  Sender: FDA-Public Use
  Company Number: DE-TEVA-2018-DE-903753

PATIENT
  Age: 77 Year
  Sex: Female
  Weight: 87.4 kg

DRUGS (14)
  1. TIMOLOL. [Concomitant]
     Active Substance: TIMOLOL
     Dosage: DROPS
     Route: 031
  2. PREDNISOLON [Concomitant]
     Active Substance: PREDNISOLONE
     Dosage: 1 MILLIGRAM DAILY;
     Route: 048
  3. ACETYLSALICYLIC ACID [Suspect]
     Active Substance: ASPIRIN
     Dosage: 100 MILLIGRAM DAILY; 100 MG, 1-0-0-0
     Route: 048
  4. LEVOTHYROXINE SODIUM. [Concomitant]
     Active Substance: LEVOTHYROXINE SODIUM
     Dosage: 50 MICROGRAM DAILY;
     Route: 048
  5. CLOPIDOGREL [Suspect]
     Active Substance: CLOPIDOGREL BISULFATE
     Dosage: 75 MILLIGRAM DAILY;
     Route: 048
  6. XIPAMIDE [Concomitant]
     Active Substance: XIPAMIDE
     Dosage: 10 MILLIGRAM DAILY;
     Route: 048
  7. FENTANYL. [Concomitant]
     Active Substance: FENTANYL
     Dosage: 62, PLASTER TRANSDERMAL
     Route: 062
  8. ISOPHANE INSULIN [Concomitant]
     Active Substance: INSULIN NOS
     Dosage: 14 IU (INTERNATIONAL UNIT) DAILY;
     Route: 058
  9. MOLSIDOMINE [Concomitant]
     Active Substance: MOLSIDOMINE
     Dosage: 8 MILLIGRAM DAILY;
     Route: 048
  10. APIXABAN [Suspect]
     Active Substance: APIXABAN
     Dosage: 2.5 MG, 1-0-1-0
     Route: 048
  11. TORASEMID [Concomitant]
     Active Substance: TORSEMIDE
     Route: 048
  12. SIMVASTATIN. [Concomitant]
     Active Substance: SIMVASTATIN
     Dosage: 20 MILLIGRAM DAILY;
     Route: 048
  13. PANTOPRAZOL [Concomitant]
     Active Substance: PANTOPRAZOLE SODIUM
     Dosage: 40 MILLIGRAM DAILY;
     Route: 048
  14. BISOPROLOL [Concomitant]
     Active Substance: BISOPROLOL
     Route: 048

REACTIONS (5)
  - Gastrointestinal haemorrhage [Unknown]
  - Haematochezia [Unknown]
  - Dyspnoea [Unknown]
  - Angina pectoris [Unknown]
  - Anaemia [Unknown]
